FAERS Safety Report 19267002 (Version 1)
Quarter: 2021Q2

REPORT INFORMATION
  Report Type: Spontaneous
  Country: US (occurrence: US)
  Receive Date: 20210518
  Receipt Date: 20210518
  Transmission Date: 20210717
  Serious: No
  Sender: FDA-Public Use
  Company Number: US-B.I. PHARMACEUTICALS,INC./RIDGEFIELD-2021-BI-103992

PATIENT
  Age: 62 Year
  Sex: Male
  Weight: 75.75 kg

DRUGS (8)
  1. TREPROSTINIL [TREPROSTINIL SODIUM] [Suspect]
     Active Substance: TREPROSTINIL SODIUM
     Route: 055
  2. SPIRIVA [Suspect]
     Active Substance: TIOTROPIUM BROMIDE MONOHYDRATE
     Indication: PRODUCT USED FOR UNKNOWN INDICATION
  3. TREPROSTINIL [TREPROSTINIL SODIUM] [Suspect]
     Active Substance: TREPROSTINIL SODIUM
     Route: 055
  4. TREPROSTINIL [TREPROSTINIL SODIUM] [Suspect]
     Active Substance: TREPROSTINIL SODIUM
     Route: 055
     Dates: start: 20210330
  5. TREPROSTINIL [TREPROSTINIL SODIUM] [Suspect]
     Active Substance: TREPROSTINIL SODIUM
     Indication: LUNG DISORDER
     Route: 055
  6. TREPROSTINIL [TREPROSTINIL SODIUM] [Suspect]
     Active Substance: TREPROSTINIL SODIUM
     Route: 055
  7. TREPROSTINIL [TREPROSTINIL SODIUM] [Suspect]
     Active Substance: TREPROSTINIL SODIUM
     Dosage: 18?54 UG, QID, INHALATION
     Route: 055
  8. TREPROSTINIL [TREPROSTINIL SODIUM] [Suspect]
     Active Substance: TREPROSTINIL SODIUM
     Dosage: 54 UG (9 BREATHS PER (INHALED) #INHALATION
     Route: 055

REACTIONS (8)
  - Dry throat [Unknown]
  - Wheezing [Unknown]
  - Dyspnoea exertional [Unknown]
  - Throat irritation [Unknown]
  - Blood pressure increased [Recovered/Resolved]
  - Nasopharyngitis [Unknown]
  - Fatigue [Unknown]
  - Cough [Recovered/Resolved]
